FAERS Safety Report 14079461 (Version 3)
Quarter: 2017Q4

REPORT INFORMATION
  Report Type: Spontaneous
  Country: GB (occurrence: GB)
  Receive Date: 20171012
  Receipt Date: 20171208
  Transmission Date: 20180321
  Serious: Yes (Other)
  Sender: FDA-Public Use
  Company Number: GB-PFIZER INC-2017438378

PATIENT
  Age: 62 Year
  Sex: Male
  Weight: 90 kg

DRUGS (27)
  1. CYCLIZINE [Concomitant]
     Active Substance: CYCLIZINE
     Indication: NAUSEA
     Dosage: 1 DF, 3X/DAY
     Route: 065
     Dates: start: 20170314
  2. HYLO-FORTE [Concomitant]
     Active Substance: HYALURONATE SODIUM
     Dosage: 1 DF, AS NEEDED APPLY
     Route: 065
     Dates: start: 20170314
  3. THEOPHYLLINE [Concomitant]
     Active Substance: THEOPHYLLINE ANHYDROUS
     Dosage: TAKE ONE EVERY MORNING AND TWO EVERY EVENING.
     Route: 065
     Dates: start: 20170314
  4. ZEROCREAM [Concomitant]
     Dosage: 1 DF, AS NEEDED (TO BE APPLIED TWICE A DAY)
     Route: 065
     Dates: start: 20160211
  5. PREDNISOLONE. [Concomitant]
     Active Substance: PREDNISOLONE
     Dosage: 4 DF, 1X/DAY (MORNING AS PER HOSPITAL)
     Route: 065
     Dates: start: 20170314
  6. GABAPENTIN. [Suspect]
     Active Substance: GABAPENTIN
     Indication: BACK PAIN
     Dosage: UNK
     Route: 065
     Dates: start: 20170915, end: 2017
  7. IPRATROPIUM BROMIDE. [Concomitant]
     Active Substance: IPRATROPIUM BROMIDE
     Dosage: 1 DF, 4X/DAY
     Route: 055
     Dates: start: 20170314
  8. CETIRIZINE [Concomitant]
     Active Substance: CETIRIZINE HYDROCHLORIDE
     Dosage: 1 DF, AS NEEDED (EVERY DAY)
     Route: 065
     Dates: start: 20170314
  9. LOSARTAN. [Concomitant]
     Active Substance: LOSARTAN
     Dosage: 1 DF, 1X/DAY
     Route: 065
     Dates: start: 20170314
  10. PANTOPRAZOLE [Concomitant]
     Active Substance: PANTOPRAZOLE
     Dosage: 1 DF, 1X/DAY
     Route: 065
     Dates: start: 20170314
  11. TRAMADOL. [Concomitant]
     Active Substance: TRAMADOL
     Dosage: TAKE ONE TO TWO CAPSULES FOUR TIMES DAILY AS REQUIRE
     Route: 065
     Dates: start: 20170314
  12. AZITHROMYCIN ANHYDROUS. [Concomitant]
     Active Substance: AZITHROMYCIN ANHYDROUS
     Dosage: 1 DF THREE TIMES A WEEK (OR AS DIRECTED)
     Route: 065
     Dates: start: 20170314
  13. INDAPAMIDE. [Concomitant]
     Active Substance: INDAPAMIDE
     Dosage: 1 DF, 1X/DAY EACH MORNING
     Route: 065
     Dates: start: 20170314
  14. MUCODYNE [Concomitant]
     Active Substance: CARBOCYSTEINE
     Dosage: 1 DF, 3X/DAY
     Route: 016
     Dates: start: 20170314
  15. PREGABALIN. [Concomitant]
     Active Substance: PREGABALIN
     Dosage: 1 DF, 2X/DAY
     Route: 065
     Dates: start: 20170919
  16. QUININE [Concomitant]
     Active Substance: QUININE
     Dosage: 1 DF, AS NEEDED EVERY NIGHT
     Route: 065
     Dates: start: 20170314
  17. SALBUTAMOL [Concomitant]
     Active Substance: ALBUTEROL
     Dosage: 1 DF, 4X/DAY
     Route: 055
     Dates: start: 20170314
  18. ATORVASTATIN [Concomitant]
     Active Substance: ATORVASTATIN
     Dosage: 1 DF, 1X/DAY
     Route: 065
     Dates: start: 20170314
  19. FLUTICASONE FUROATE [Concomitant]
     Active Substance: FLUTICASONE FUROATE
     Dosage: 2 DF, 1X/DAY INTO EACH NOSTRIL
     Route: 045
     Dates: start: 20170314
  20. HYOSCINE BUTYLBROMIDE [Concomitant]
     Active Substance: BUTYLSCOPOLAMINE
     Dosage: TAKE ONE-TWO 4 TIMES/DAY
     Route: 065
     Dates: start: 20170314
  21. MONOPOST [Concomitant]
     Dosage: USE AS DIRECTED BY THE EYE TEAM
     Route: 065
     Dates: start: 20170704
  22. ACENOCOUMAROL [Concomitant]
     Active Substance: ACENOCOUMAROL
     Dosage: TAKE AS PER WAFARIN CLINIC.
     Route: 065
     Dates: start: 20170314
  23. ADCAL /00944201/ [Concomitant]
     Active Substance: CALCIUM CARBONATE\CHOLECALCIFEROL
     Dosage: 2 DF, 2X/DAY
     Route: 065
     Dates: start: 20170314
  24. CARBOMER [Concomitant]
     Active Substance: CARBOMER
     Dosage: 1 GTT, AS NEEDED
     Route: 065
     Dates: start: 20170314
  25. SYMBICORT [Concomitant]
     Active Substance: BUDESONIDE\FORMOTEROL FUMARATE DIHYDRATE
     Dosage: 2 DF, 3X/DAY
     Route: 055
     Dates: start: 20170314
  26. BRINZOLAMIDE [Concomitant]
     Active Substance: BRINZOLAMIDE
     Dosage: 1 GTT, 2X/DAY
     Route: 016
     Dates: start: 20170314
  27. MONTELUKAST [Concomitant]
     Active Substance: MONTELUKAST SODIUM
     Dosage: 1 DF, 1X/DAY NIGHT AS PER HOSPITAL
     Route: 065
     Dates: start: 20170314

REACTIONS (2)
  - Wheezing [Recovered/Resolved]
  - Condition aggravated [Recovered/Resolved]

NARRATIVE: CASE EVENT DATE: 20170915
